FAERS Safety Report 8584459-4 (Version None)
Quarter: 2012Q3

REPORT INFORMATION
  Report Type: 
  Country: None (occurrence: None)
  Receive Date: 20120730
  Receipt Date: 20120713
  Transmission Date: 20120928
  Serious: Yes (Other)
  Sender: FDA-Public Use
  Company Number: USA/USA/12/0025042

PATIENT
  Age: 17 Year
  Sex: Female
  Weight: 181.4388 kg

DRUGS (1)
  1. LEVOFLOXACIN [Suspect]
     Indication: URINARY TRACT INFECTION
     Dosage: 500  MG, 1 IN 1 D, ORAL
     Route: 048
     Dates: start: 20120601

REACTIONS (5)
  - ACTIVITIES OF DAILY LIVING IMPAIRED [None]
  - ASTHENIA [None]
  - BEDRIDDEN [None]
  - MALAISE [None]
  - PAIN IN EXTREMITY [None]
